FAERS Safety Report 7205357-4 (Version None)
Quarter: 2010Q4

REPORT INFORMATION
  Report Type: 
  Country: None (occurrence: None)
  Receive Date: 20101231
  Receipt Date: 20101229
  Transmission Date: 20110411
  Serious: No
  Sender: FDA-Public Use
  Company Number: US-PFIZER INC-2010181462

PATIENT
  Sex: Female
  Weight: 56.7 kg

DRUGS (4)
  1. PRISTIQ [Suspect]
     Indication: DEPRESSION
     Dosage: 50 MG, 1X/DAY
     Route: 048
     Dates: start: 20100101
  2. MAXALT-MLT [Concomitant]
     Indication: MIGRAINE
     Dosage: AS NEEDED
  3. TOPIRAMATE [Concomitant]
     Indication: MIGRAINE
     Dosage: 200 MG, 2X/DAY
  4. LYRICA [Concomitant]
     Indication: FIBROMYALGIA
     Dosage: 200 MG, 1X/DAY

REACTIONS (1)
  - ALOPECIA [None]
